FAERS Safety Report 17186532 (Version 1)
Quarter: 2019Q4

REPORT INFORMATION
  Report Type: Spontaneous
  Country: US (occurrence: US)
  Receive Date: 20191220
  Receipt Date: 20191220
  Transmission Date: 20200122
  Serious: Yes (Hospitalization)
  Sender: FDA-Public Use
  Company Number: US-JNJFOC-20191223144

PATIENT
  Sex: Male

DRUGS (2)
  1. RISPERDAL [Suspect]
     Active Substance: RISPERIDONE
     Indication: COGNITIVE DISORDER
  2. RISPERDAL [Suspect]
     Active Substance: RISPERIDONE
     Indication: MENTAL DISORDER
     Route: 048
     Dates: start: 201005, end: 201010

REACTIONS (7)
  - Obesity [Unknown]
  - Post-traumatic stress disorder [Unknown]
  - Aggression [Unknown]
  - Gynaecomastia [Unknown]
  - Mental disorder [Unknown]
  - Depression [Unknown]
  - Sleep disorder [Unknown]
